FAERS Safety Report 14126091 (Version 2)
Quarter: 2017Q4

REPORT INFORMATION
  Report Type: Spontaneous
  Country: US (occurrence: US)
  Receive Date: 20171025
  Receipt Date: 20171123
  Transmission Date: 20180321
  Serious: No
  Sender: FDA-Public Use
  Company Number: US-009507513-1710USA001741

PATIENT
  Age: 66 Year
  Sex: Female

DRUGS (2)
  1. DULERA [Suspect]
     Active Substance: FORMOTEROL FUMARATE DIHYDRATE\MOMETASONE FUROATE
     Dosage: UNSPECIFIED NUMBER OF PUFFS/TWICE PER DAY, INHALED
     Route: 055
     Dates: start: 2017
  2. DULERA [Suspect]
     Active Substance: FORMOTEROL FUMARATE DIHYDRATE\MOMETASONE FUROATE
     Indication: ASTHMA
     Dosage: UNSPECIFIED NUMBER OF PUFFS/ TWICE PER DAY,  INHALED
     Route: 055

REACTIONS (5)
  - Migraine [Unknown]
  - Expired product administered [Unknown]
  - Product quality issue [Unknown]
  - Nasal septum deviation [Unknown]
  - Visual impairment [Unknown]
